FAERS Safety Report 17569136 (Version 3)
Quarter: 2020Q2

REPORT INFORMATION
  Report Type: Report from Study
  Country: None (occurrence: US)
  Receive Date: 20200322
  Receipt Date: 20200518
  Transmission Date: 20200713
  Serious: Yes (Other)
  Sender: FDA-Public Use
  Company Number: US-ABBVIE-20K-163-3325943-00

PATIENT
  Age: 31 Year
  Sex: Male

DRUGS (1)
  1. HUMIRA [Suspect]
     Active Substance: ADALIMUMAB
     Indication: HIDRADENITIS
     Route: 058
     Dates: start: 201901, end: 202002

REACTIONS (3)
  - Wound [Not Recovered/Not Resolved]
  - Skin cancer [Recovering/Resolving]
  - Skin procedural complication [Unknown]

NARRATIVE: CASE EVENT DATE: 202002
